FAERS Safety Report 6717078-2 (Version None)
Quarter: 2010Q2

REPORT INFORMATION
  Report Type: 
  Country: None (occurrence: None)
  Receive Date: 20100510
  Receipt Date: 20100429
  Transmission Date: 20101027
  Serious: Yes (Hospitalization, Congenital Anomaly, Other)
  Sender: FDA-Public Use
  Company Number: US-BRISTOL-MYERS SQUIBB COMPANY-12645404

PATIENT
  Age: 1 Day
  Sex: Male
  Weight: 4 kg

DRUGS (6)
  1. SUSTIVA [Suspect]
     Dosage: ONGOING AT CONCEPTION.  EXPOSURE TO WEEK 17 OF GESTATION.
     Route: 064
     Dates: end: 20040313
  2. VIREAD [Suspect]
     Dosage: ONGOING AT CONCEPTION TO DELIVERY.
     Route: 064
     Dates: end: 20040729
  3. EPIVIR [Suspect]
     Dosage: ONGOING AT CONCEPTION.  EXPOSURE TO WEEK 11 OF GESTATION.
     Route: 064
     Dates: end: 20040219
  4. VIRAMUNE [Suspect]
     Dosage: EXPOSURE PERICONCEPTIONAL TO DELIVERY.
     Route: 064
     Dates: start: 20031219, end: 20040729
  5. COMBIVIR [Suspect]
     Route: 064
     Dates: start: 20040220, end: 20040729
  6. ZIDOVUDINE [Suspect]
     Route: 064

REACTIONS (2)
  - ARNOLD-CHIARI MALFORMATION [None]
  - MENINGOMYELOCELE [None]
